FAERS Safety Report 19903253 (Version 2)
Quarter: 2022Q3

REPORT INFORMATION
  Report Type: Spontaneous
  Country: US (occurrence: None)
  Receive Date: 20211001
  Receipt Date: 20220930
  Transmission Date: 20221027
  Serious: No
  Sender: FDA-Public Use
  Company Number: US-SPARK THERAPEUTICS, INC.-US-SPK-21-00053

PATIENT
  Age: 3 Year
  Sex: Female

DRUGS (4)
  1. LUXTURNA [Suspect]
     Active Substance: VORETIGENE NEPARVOVEC-RZYL
     Indication: Product used for unknown indication
     Dates: start: 20210602, end: 20210602
  2. LUXTURNA [Suspect]
     Active Substance: VORETIGENE NEPARVOVEC-RZYL
     Dates: start: 20210609, end: 20210609
  3. LUXTURNA [Suspect]
     Active Substance: VORETIGENE NEPARVOVEC-RZYL
     Indication: Product used for unknown indication
     Dates: start: 20210602, end: 20210602
  4. LUXTURNA [Suspect]
     Active Substance: VORETIGENE NEPARVOVEC-RZYL
     Dates: start: 20210609, end: 20210609

REACTIONS (2)
  - Intra-ocular injection complication [Recovering/Resolving]
  - Visual impairment [Unknown]

NARRATIVE: CASE EVENT DATE: 20210609
